FAERS Safety Report 15677319 (Version 5)
Quarter: 2019Q1

REPORT INFORMATION
  Report Type: Report from Study
  Country: ZA (occurrence: ZA)
  Receive Date: 20181130
  Receipt Date: 20190315
  Transmission Date: 20190417
  Serious: Yes (Hospitalization)
  Sender: FDA-Public Use
  Company Number: ZA-SAKK-2018SA321899AA

PATIENT
  Age: 61 Year
  Sex: Female

DRUGS (11)
  1. BRAZEPAM [Concomitant]
     Active Substance: BROMAZEPAM
     Dosage: AS-3 MG
     Dates: start: 20180101
  2. OPTISULIN (INSULIN GLARGINE) [Suspect]
     Active Substance: INSULIN GLARGINE
     Dosage: 60 U, HS
     Route: 065
     Dates: start: 20181115
  3. VIMOVO [Concomitant]
     Active Substance: ESOMEPRAZOLE MAGNESIUM\NAPROXEN
     Dosage: UNK, UNK
     Dates: start: 20180101
  4. ECOTRIN [Concomitant]
     Active Substance: ASPIRIN
     Dosage: 81 MG AT BB
     Dates: start: 20180101
  5. INSULIN GLULISINE [Suspect]
     Active Substance: INSULIN GLULISINE
     Dosage: 16 U, TID
     Route: 065
     Dates: start: 20181115
  6. GLAMARYL [Concomitant]
     Active Substance: GLIMEPIRIDE
     Dosage: 4 MG, QD
     Dates: start: 20180101
  7. CIPLASYL [Concomitant]
     Active Substance: PERINDOPRIL ERBUMINE
     Dosage: 4 MG, BB
     Dates: start: 20180101
  8. OPTISULIN (INSULIN GLARGINE) [Suspect]
     Active Substance: INSULIN GLARGINE
     Dosage: 24 U, HS
     Route: 065
     Dates: start: 20181115
  9. GLUCOPHAGE [Concomitant]
     Active Substance: METFORMIN HYDROCHLORIDE
     Dosage: 1000 MG AT BB,BS
     Dates: start: 20181101
  10. ADCO-SIMVASTATIN [Concomitant]
     Active Substance: SIMVASTATIN
     Dosage: 20 MG AT BS
     Dates: start: 20180101
  11. DIAGLUCIDE [Concomitant]
     Active Substance: GLICLAZIDE
     Dosage: BB-120 MG
     Dates: start: 20181203

REACTIONS (8)
  - Nasopharyngitis [Not Recovered/Not Resolved]
  - Influenza [Not Recovered/Not Resolved]
  - Constipation [Not Recovered/Not Resolved]
  - Depression [Recovered/Resolved]
  - Malaise [Recovering/Resolving]
  - Blood glucose decreased [Recovering/Resolving]
  - Cough [Not Recovered/Not Resolved]
  - Fatigue [Recovered/Resolved]

NARRATIVE: CASE EVENT DATE: 20181117
